FAERS Safety Report 4779788-6 (Version None)
Quarter: 2005Q3

REPORT INFORMATION
  Report Type: 
  Country: None (occurrence: None)
  Receive Date: 20050914
  Receipt Date: 20040831
  Transmission Date: 20060218
  Serious: Yes (Death, Other)
  Sender: FDA-Public Use
  Company Number: 163-20785-04030129

PATIENT
  Age: 53 Year
  Sex: Female

DRUGS (11)
  1. THALOMID [Suspect]
     Indication: MALIGNANT MELANOMA
     Dosage: 200 MG, DAILY, ORAL
     Route: 048
     Dates: start: 20040109, end: 20040301
  2. THALOMID [Suspect]
     Indication: METASTASES TO BONE
     Dosage: 200 MG, DAILY, ORAL
     Route: 048
     Dates: start: 20040109, end: 20040301
  3. THALOMID [Suspect]
     Indication: METASTASES TO CENTRAL NERVOUS SYSTEM
     Dosage: 200 MG, DAILY, ORAL
     Route: 048
     Dates: start: 20040109, end: 20040301
  4. TEMOZOLOMIDE (TEMOZOLOMIDE) [Suspect]
     Indication: MALIGNANT MELANOMA
     Dosage: UNKNOWN
     Route: 065
  5. TEMOZOLOMIDE (TEMOZOLOMIDE) [Suspect]
     Indication: METASTASES TO CENTRAL NERVOUS SYSTEM
     Dosage: UNKNOWN
     Route: 065
  6. NEURONTIN [Concomitant]
  7. HYDROCODONE (PARACETAMOL) [Concomitant]
  8. FENTAYL PATCH (FENTANYL CITRATE) [Concomitant]
  9. LORAZEPAM [Concomitant]
  10. DEXAMETHASONE [Concomitant]
  11. HYDROMORPHONE HCL [Concomitant]

REACTIONS (2)
  - DEATH [None]
  - DISEASE PROGRESSION [None]
